FAERS Safety Report 16177986 (Version 1)
Quarter: 2019Q2

REPORT INFORMATION
  Report Type: Spontaneous
  Country: PL (occurrence: PL)
  Receive Date: 20190410
  Receipt Date: 20190410
  Transmission Date: 20190711
  Serious: No
  Sender: FDA-Public Use
  Company Number: PL-ALKEM LABORATORIES LIMITED-PL-ALKEM-2018-04324

PATIENT
  Age: 26 Year
  Sex: Male

DRUGS (8)
  1. ESTAZOLAM. [Suspect]
     Active Substance: ESTAZOLAM
     Indication: SLEEP DISORDER
     Dosage: UNK
     Route: 065
  2. ZOPICLONE [Suspect]
     Active Substance: ZOPICLONE
     Indication: SLEEP DISORDER
     Dosage: UNK
     Route: 065
  3. NITRAZEPAM [Suspect]
     Active Substance: NITRAZEPAM
     Indication: SLEEP DISORDER
     Dosage: UNK
     Route: 065
  4. ZOLPIDEM [Suspect]
     Active Substance: ZOLPIDEM\ZOLPIDEM TARTRATE
     Indication: SLEEP DISORDER
     Dosage: UNK
     Route: 065
  5. QUETIAPINE FUMARATE. [Suspect]
     Active Substance: QUETIAPINE FUMARATE
     Indication: SLEEP DISORDER
     Dosage: 25 MG, QD
     Route: 065
  6. QUETIAPINE FUMARATE. [Suspect]
     Active Substance: QUETIAPINE FUMARATE
     Dosage: 200 MG, QD
     Route: 065
  7. PERAZINE [Suspect]
     Active Substance: PERAZINE
     Indication: SLEEP DISORDER
     Dosage: 25 MG, QD
     Route: 065
  8. PERAZINE [Suspect]
     Active Substance: PERAZINE
     Dosage: 100 MG, QD
     Route: 065

REACTIONS (7)
  - Fatigue [Unknown]
  - Paraesthesia [Unknown]
  - Anhedonia [Unknown]
  - Affective disorder [Unknown]
  - Sedation complication [Unknown]
  - Drug ineffective [Unknown]
  - Depressed mood [Unknown]
